FAERS Safety Report 18051764 (Version 2)
Quarter: 2020Q3

REPORT INFORMATION
  Report Type: Spontaneous
  Country: BR (occurrence: BR)
  Receive Date: 20200721
  Receipt Date: 20200827
  Transmission Date: 20201103
  Serious: Yes (Other)
  Sender: FDA-Public Use
  Company Number: NVSC2020BR203704

PATIENT
  Sex: Male

DRUGS (1)
  1. AZORGA [Suspect]
     Active Substance: BRINZOLAMIDE\TIMOLOL MALEATE
     Indication: PRODUCT USED FOR UNKNOWN INDICATION
     Dosage: UNK
     Route: 065

REACTIONS (6)
  - Intraocular pressure increased [Unknown]
  - Retinal ischaemia [Unknown]
  - Product dose omission issue [Unknown]
  - Visual impairment [Unknown]
  - Bladder adenocarcinoma stage unspecified [Unknown]
  - Product use issue [Unknown]
